FAERS Safety Report 4413957-X (Version None)
Quarter: 2004Q3

REPORT INFORMATION
  Report Type: 
  Country: None (occurrence: None)
  Receive Date: 20040729
  Receipt Date: 20040726
  Transmission Date: 20050211
  Serious: Yes (Death)
  Sender: FDA-Public Use
  Company Number: TPG0T01249593

PATIENT
  Age: 83 Year
  Sex: Male

DRUGS (5)
  1. TRENANTONE (LEUPRORELIN) (INJECTION) [Suspect]
     Indication: PROSTATE CANCER
     Dosage: 11.25 MG (11.25 MG, 1 IN 3 M) SUBCUTANEOUS : 11.25 MG (11.25 MG, 1 IN 84 D) SEE IMAGE
     Route: 058
     Dates: start: 19970901, end: 19970901
  2. TRENANTONE (LEUPRORELIN) (INJECTION) [Suspect]
     Indication: PROSTATE CANCER
     Dosage: 11.25 MG (11.25 MG, 1 IN 3 M) SUBCUTANEOUS : 11.25 MG (11.25 MG, 1 IN 84 D) SEE IMAGE
     Route: 058
     Dates: start: 19971201, end: 19971201
  3. TRENANTONE (LEUPRORELIN) (INJECTION) [Suspect]
     Indication: PROSTATE CANCER
     Dosage: 11.25 MG (11.25 MG, 1 IN 3 M) SUBCUTANEOUS : 11.25 MG (11.25 MG, 1 IN 84 D) SEE IMAGE
     Route: 058
     Dates: start: 19980301, end: 19980301
  4. TRENANTONE (LEUPRORELIN) (INJECTION) [Suspect]
     Indication: PROSTATE CANCER
     Dosage: 11.25 MG (11.25 MG, 1 IN 3 M) SUBCUTANEOUS : 11.25 MG (11.25 MG, 1 IN 84 D) SEE IMAGE
     Route: 058
     Dates: start: 19970604, end: 19980418
  5. CYPROTERONE ACETATE [Concomitant]

REACTIONS (1)
  - CEREBROVASCULAR ACCIDENT [None]
